FAERS Safety Report 20595578 (Version 1)
Quarter: 2022Q1

REPORT INFORMATION
  Report Type: Spontaneous
  Country: DE (occurrence: None)
  Receive Date: 20220315
  Receipt Date: 20220315
  Transmission Date: 20220423
  Serious: Yes (Hospitalization)
  Sender: FDA-Public Use
  Company Number: 2022A101752

PATIENT
  Age: 66 Year
  Sex: Male
  Weight: 135 kg

DRUGS (3)
  1. TICAGRELOR [Interacting]
     Active Substance: TICAGRELOR
     Dosage: UNK
     Route: 048
     Dates: start: 20201005, end: 20210517
  2. ASPIRIN [Interacting]
     Active Substance: ASPIRIN
     Dosage: UNK
     Route: 065
     Dates: start: 20120413
  3. SEMAGLUTIDE [Concomitant]
     Active Substance: SEMAGLUTIDE
     Indication: Obesity
     Dosage: UNK
     Route: 065
     Dates: start: 20201222

REACTIONS (2)
  - Epistaxis [Recovered/Resolved]
  - Labelled drug-drug interaction medication error [Unknown]

NARRATIVE: CASE EVENT DATE: 20210302
